FAERS Safety Report 5920914-0 (Version None)
Quarter: 2008Q4

REPORT INFORMATION
  Report Type: 
  Country: None (occurrence: None)
  Receive Date: 20081015
  Receipt Date: 20081015
  Transmission Date: 20090506
  Serious: Yes (Hospitalization)
  Sender: FDA-Public Use
  Company Number: None

PATIENT
  Sex: Female
  Weight: 62.4 kg

DRUGS (2)
  1. DACARBAZINE [Suspect]
     Indication: MALIGNANT MELANOMA
     Dosage: 1630MG, IV Q21DAYS
     Dates: start: 20081001, end: 20081001
  2. DASATINIB-70MG-BRISTOL-MEYERS SQUIBB [Suspect]
     Indication: MALIGNANT MELANOMA
     Dosage: 70MG ORALLY BID
     Dates: start: 20081002, end: 20081012

REACTIONS (3)
  - FEBRILE NEUTROPENIA [None]
  - RASH GENERALISED [None]
  - URINARY TRACT INFECTION [None]
